FAERS Safety Report 6177473-X (Version None)
Quarter: 2009Q2

REPORT INFORMATION
  Report Type: 
  Country: None (occurrence: None)
  Receive Date: 20090501
  Receipt Date: 20090501
  Transmission Date: 20091009
  Serious: No
  Sender: FDA-Public Use
  Company Number: None

PATIENT
  Age: 29 Year
  Sex: Male
  Weight: 104 kg

DRUGS (4)
  1. MORPHINE [Suspect]
     Indication: PAIN
     Dosage: 0/1/10 PCA
     Dates: start: 20090221
  2. HYDROMORPHONE HCL [Suspect]
     Indication: PAIN
     Dosage: 0.5MG X2
     Dates: start: 20090221
  3. ENOXAPARIN SODIUM [Concomitant]
  4. UNASYN [Concomitant]

REACTIONS (1)
  - LETHARGY [None]
